FAERS Safety Report 7542194-5 (Version None)
Quarter: 2011Q2

REPORT INFORMATION
  Report Type: 
  Country: None (occurrence: None)
  Receive Date: 20110613
  Receipt Date: 20110602
  Transmission Date: 20111010
  Serious: Yes (Other)
  Sender: FDA-Public Use
  Company Number: AU-ASTRAZENECA-2011SE34146

PATIENT
  Sex: Male

DRUGS (3)
  1. CRESTOR [Suspect]
     Route: 048
  2. PLAVIX [Suspect]
  3. CLOPIDOGREL [Suspect]
     Dosage: DAILY
     Route: 048
     Dates: start: 20110427

REACTIONS (3)
  - HEPATOMEGALY [None]
  - HEPATITIS [None]
  - LIVER TENDERNESS [None]
